FAERS Safety Report 12522396 (Version 2)
Quarter: 2016Q3

REPORT INFORMATION
  Report Type: Spontaneous
  Country: NL (occurrence: NL)
  Receive Date: 20160701
  Receipt Date: 20160708
  Transmission Date: 20161109
  Serious: Yes (Hospitalization)
  Sender: FDA-Public Use
  Company Number: NL-009507513-1606NLD012789

PATIENT
  Sex: Female
  Weight: 62 kg

DRUGS (6)
  1. RISEDRONATE SODIUM. [Concomitant]
     Active Substance: RISEDRONATE SODIUM
     Dosage: 1 X PER WEEK
     Route: 048
     Dates: start: 20150701
  2. FERROUS FUMARATE [Concomitant]
     Active Substance: FERROUS FUMARATE
     Dosage: 2 DD 1
     Route: 048
  3. REQUIP [Concomitant]
     Active Substance: ROPINIROLE HYDROCHLORIDE
     Dosage: 2 DD 3 MG
     Route: 048
     Dates: start: 20071205, end: 20080327
  4. SINEMET [Suspect]
     Active Substance: CARBIDOPA\LEVODOPA
     Indication: PARKINSON^S DISEASE
     Dosage: 4 TIMES DAILY 4 UNITS, INCREASED IN THE TIME
     Route: 048
     Dates: start: 20071205
  5. FLORINEF ACETATE [Concomitant]
     Active Substance: FLUDROCORTISONE ACETATE
     Dosage: 1 DD 2
     Route: 048
     Dates: start: 201503
  6. DIVISUN [Concomitant]
     Dosage: ELKE DAG
     Route: 048
     Dates: start: 201506

REACTIONS (8)
  - Somnolence [Recovering/Resolving]
  - Confusional state [Not Recovered/Not Resolved]
  - Orthostatic hypotension [Not Recovered/Not Resolved]
  - Fracture [Unknown]
  - Restlessness [Not Recovered/Not Resolved]
  - Incontinence [Not Recovered/Not Resolved]
  - Diplopia [Not Recovered/Not Resolved]
  - Fall [Not Recovered/Not Resolved]

NARRATIVE: CASE EVENT DATE: 2007
